FAERS Safety Report 11934706 (Version 1)
Quarter: 2016Q1

REPORT INFORMATION
  Report Type: Spontaneous
  Country: US (occurrence: None)
  Receive Date: 20160120
  Receipt Date: 20160120
  Transmission Date: 20160526
  Serious: No
  Sender: FDA-Public Use
  Company Number: None

PATIENT
  Age: 61 Year
  Sex: Female
  Weight: 61.69 kg

DRUGS (1)
  1. PICATO [Suspect]
     Active Substance: INGENOL MEBUTATE
     Indication: PRECANCEROUS MUCOSAL LESION
     Dosage: APPLY ONE TUBE/A DAY ONCE DAILY APPLIED TO A SURFACE, USUALLY THE SKIN
     Dates: start: 20160101, end: 20160103

REACTIONS (6)
  - Pigmentation disorder [None]
  - Erythema [None]
  - Scab [None]
  - Discomfort [None]
  - Swelling face [None]
  - Scar [None]

NARRATIVE: CASE EVENT DATE: 20160101
